FAERS Safety Report 14668063 (Version 2)
Quarter: 2018Q2

REPORT INFORMATION
  Report Type: Spontaneous
  Country: DE (occurrence: DE)
  Receive Date: 20180322
  Receipt Date: 20180423
  Transmission Date: 20180711
  Serious: Yes (Death, Hospitalization, Other)
  Sender: FDA-Public Use
  Company Number: DE-AUROBINDO-AUR-APL-2018-016247

PATIENT
  Age: 15 Month
  Sex: Female
  Weight: 9.6 kg

DRUGS (9)
  1. VARIVAX (HERBALS\HORSE CHESTNUT) [Suspect]
     Active Substance: HORSE CHESTNUT
     Indication: PROPHYLAXIS
     Dosage: 1 DF
     Route: 030
     Dates: start: 20170222, end: 20170222
  2. PHENOBARBITAL. [Suspect]
     Active Substance: PHENOBARBITAL
     Indication: PRODUCT USED FOR UNKNOWN INDICATION
     Dosage: UNK
     Route: 065
  3. SPIRONOLACTONE. [Suspect]
     Active Substance: SPIRONOLACTONE
     Indication: PRODUCT USED FOR UNKNOWN INDICATION
     Dosage: ()
     Route: 065
  4. SYNAGIS [Suspect]
     Active Substance: PALIVIZUMAB
     Indication: PRODUCT USED FOR UNKNOWN INDICATION
     Dosage: 150 MG, UNK
     Route: 030
     Dates: start: 20170207
  5. TOPIRAMATE. [Suspect]
     Active Substance: TOPIRAMATE
     Indication: PRODUCT USED FOR UNKNOWN INDICATION
     Dosage: UNK
     Route: 065
  6. SPIRONOLACTONE. [Suspect]
     Active Substance: SPIRONOLACTONE
     Dosage: ()
  7. PHENOBARBITAL. [Suspect]
     Active Substance: PHENOBARBITAL
     Dosage: ()
  8. EXODUS                             /01033301/ [Suspect]
     Active Substance: NICOTINE
     Indication: PRODUCT USED FOR UNKNOWN INDICATION
     Dosage: ()
     Route: 065
  9. SILDENAFIL. [Suspect]
     Active Substance: SILDENAFIL
     Indication: PRODUCT USED FOR UNKNOWN INDICATION
     Dosage: UNK
     Route: 065

REACTIONS (10)
  - Dry skin [Unknown]
  - Oxygen saturation decreased [Unknown]
  - Pain [Unknown]
  - Flatulence [Fatal]
  - Blood glucose decreased [None]
  - Respiratory failure [Fatal]
  - Pneumonia [Fatal]
  - Haemoglobin decreased [None]
  - Immobile [Fatal]
  - Blood bilirubin increased [None]

NARRATIVE: CASE EVENT DATE: 20170201
